FAERS Safety Report 13559420 (Version 1)
Quarter: 2017Q2

REPORT INFORMATION
  Report Type: Spontaneous
  Country: US (occurrence: US)
  Receive Date: 20170518
  Receipt Date: 20170518
  Transmission Date: 20170830
  Serious: No
  Sender: FDA-Public Use
  Company Number: US-LUPIN PHARMACEUTICALS INC.-E2B_00005383

PATIENT
  Sex: Male
  Weight: 81.65 kg

DRUGS (5)
  1. VITAMINS [Concomitant]
     Active Substance: VITAMINS
     Indication: PRODUCT USED FOR UNKNOWN INDICATION
     Dosage: UNK UNK,UNK,UNKNOWN
     Route: 065
  2. QUETIAPINE TABLETS USP, 300 MG [Suspect]
     Active Substance: QUETIAPINE
     Indication: SLEEP DISORDER
  3. BUPROPION XL [Concomitant]
     Active Substance: BUPROPION
     Indication: PRODUCT USED FOR UNKNOWN INDICATION
     Dosage: 150 MG,UNK,UNKNOWN
     Route: 065
  4. QUETIAPINE TABLETS USP, 300 MG [Suspect]
     Active Substance: QUETIAPINE
     Indication: DEPRESSION
     Dosage: 2 DF,QD,
     Route: 048
     Dates: end: 20160417
  5. METHADONE [Concomitant]
     Active Substance: METHADONE HYDROCHLORIDE
     Indication: PRODUCT USED FOR UNKNOWN INDICATION
     Dosage: UNK UNK,UNK,UNKNOWN
     Route: 065

REACTIONS (3)
  - Insomnia [Not Recovered/Not Resolved]
  - Restless legs syndrome [Recovered/Resolved]
  - Product use in unapproved indication [Unknown]
